FAERS Safety Report 4296406-4 (Version None)
Quarter: 2004Q1

REPORT INFORMATION
  Report Type: 
  Country: None (occurrence: None)
  Receive Date: 20040212
  Receipt Date: 20040203
  Transmission Date: 20041129
  Serious: Yes (Other)
  Sender: FDA-Public Use
  Company Number: 2004-02-0097

PATIENT
  Sex: Male

DRUGS (2)
  1. PEG-INTRON [Suspect]
     Indication: HEPATITIS C
     Dosage: 120 MCG
     Dates: start: 20020828, end: 20030726
  2. RIBAVIRIN [Suspect]
     Dates: start: 20020828, end: 20020726

REACTIONS (2)
  - ERECTILE DYSFUNCTION [None]
  - THYROID DISORDER [None]
